FAERS Safety Report 6460439-X (Version None)
Quarter: 2009Q4

REPORT INFORMATION
  Report Type: 
  Country: None (occurrence: None)
  Receive Date: 20091130
  Receipt Date: 20091120
  Transmission Date: 20100525
  Serious: Yes (Death, Life-Threatening, Hospitalization)
  Sender: FDA-Public Use
  Company Number: TH-ROCHE-585829

PATIENT
  Sex: Female
  Weight: 70.8 kg

DRUGS (11)
  1. MYCOPHENOLATE MOFETIL [Suspect]
     Indication: LUPUS NEPHRITIS
     Route: 065
  2. OCRELIZUMAB [Suspect]
     Indication: LUPUS NEPHRITIS
     Route: 042
     Dates: start: 20080529, end: 20080611
  3. PREDNISOLONE [Suspect]
     Indication: LUPUS NEPHRITIS
     Route: 048
     Dates: start: 20080903
  4. METHYLPREDNISOLONE [Suspect]
     Indication: DRUG USE FOR UNKNOWN INDICATION
     Route: 042
  5. CALCIUM CARBONATE [Concomitant]
     Dates: start: 20050328
  6. OMEPRAZOLE [Concomitant]
     Dates: start: 20070214
  7. ENALAPRIL MALEATE [Concomitant]
     Dates: start: 20070411
  8. AMLODIPINE [Concomitant]
     Dates: start: 20080611
  9. FUROSEMIDE [Concomitant]
     Dates: start: 20080618
  10. MULTIVITAMIN NOS [Concomitant]
     Dosage: DRUG NAME: MULTIVITAMINE
     Dates: start: 20080903
  11. CIPROFLOXACIN [Concomitant]
     Dates: start: 20080828

REACTIONS (4)
  - PNEUMOCYSTIS JIROVECI PNEUMONIA [None]
  - PNEUMONIA [None]
  - RENAL FAILURE ACUTE [None]
  - SEPSIS [None]
